FAERS Safety Report 7410251-X (Version None)
Quarter: 2011Q2

REPORT INFORMATION
  Report Type: 
  Country: None (occurrence: None)
  Receive Date: 20110412
  Receipt Date: 20110301
  Transmission Date: 20111010
  Serious: Yes (Hospitalization, Other)
  Sender: FDA-Public Use
  Company Number: PHHY2011BR17456

PATIENT
  Sex: Female

DRUGS (4)
  1. CLONAZEPAM [Concomitant]
     Indication: BIPOLAR DISORDER
     Dosage: 25 MG, UNK
     Route: 048
  2. FORASEQ [Suspect]
     Indication: ASTHMA
     Dosage: UNK UKN, BID
  3. BAMIFIX [Concomitant]
     Indication: ASTHMA
     Dosage: 600 MG, UNK
     Route: 048
  4. FLUOXETINE [Concomitant]
     Indication: DEPRESSION
     Dosage: 40 MG, UNK
     Route: 048

REACTIONS (10)
  - PNEUMONIA [None]
  - HYPERTENSION [None]
  - FATIGUE [None]
  - DIABETES MELLITUS [None]
  - DEPRESSION [None]
  - DYSPNOEA [None]
  - BIPOLAR DISORDER [None]
  - HEPATITIS C [None]
  - CORROSIVE GASTRITIS [None]
  - DERMATITIS BULLOUS [None]
